FAERS Safety Report 7210565-2 (Version None)
Quarter: 2011Q1

REPORT INFORMATION
  Report Type: 
  Country: None (occurrence: None)
  Receive Date: 20110105
  Receipt Date: 20101223
  Transmission Date: 20110831
  Serious: Yes (Other)
  Sender: FDA-Public Use
  Company Number: PHEH2010US03486

PATIENT
  Sex: Male

DRUGS (1)
  1. ZELNORM [Suspect]
     Indication: GASTRIC DISORDER

REACTIONS (7)
  - MYOCARDIAL INFARCTION [None]
  - INJURY [None]
  - ANXIETY [None]
  - DISABILITY [None]
  - PAIN [None]
  - DECREASED INTEREST [None]
  - CARDIAC DISORDER [None]
